FAERS Safety Report 9976088 (Version 2)
Quarter: 2014Q1

REPORT INFORMATION
  Report Type: Report from Study
  Country: TH (occurrence: TH)
  Receive Date: 20140306
  Receipt Date: 20140312
  Transmission Date: 20141002
  Serious: Yes (Hospitalization)
  Sender: FDA-Public Use
  Company Number: PHHY2014TH027533

PATIENT
  Sex: 0

DRUGS (2)
  1. ACLASTA/ZOLEDRONATE [Suspect]
     Indication: OSTEOPOROSIS POSTMENOPAUSAL
     Dosage: ONCE PER YEAR
     Route: 042
     Dates: start: 20110804
  2. ACLASTA/ZOLEDRONATE [Suspect]
     Dosage: ONCE PER YEAR
     Route: 042
     Dates: start: 20120924

REACTIONS (1)
  - Urinary tract infection [Recovering/Resolving]
